FAERS Safety Report 8787709 (Version 1)
Quarter: 2012Q4

REPORT INFORMATION
  Report Type: Report from Study
  Country: DE (occurrence: DE)
  Receive Date: 20120914
  Receipt Date: 20120914
  Transmission Date: 20130627
  Serious: Yes (Other)
  Sender: FDA-Public Use
  Company Number: DE-BAXTER-2012BAX016676

PATIENT
  Age: 13 Year
  Sex: Male
  Weight: 58.4 kg

DRUGS (3)
  1. ADVATE  250 I.E. [Suspect]
     Indication: HEMOPHILIA A
     Dates: start: 20111026, end: 20111029
  2. ADVATE  250 I.E. [Suspect]
     Indication: PROPHYLAXIS
     Dates: start: 20111030, end: 20111030
  3. ADVATE  250 I.E. [Suspect]
     Dates: start: 20111031, end: 20111031

REACTIONS (1)
  - Haemarthrosis [Recovered/Resolved]
